FAERS Safety Report 12787774 (Version 1)
Quarter: 2016Q3

REPORT INFORMATION
  Report Type: Spontaneous
  Country: US (occurrence: US)
  Receive Date: 20160928
  Receipt Date: 20160928
  Transmission Date: 20161109
  Serious: No
  Sender: FDA-Public Use
  Company Number: US-PERRIGO-16US015884

PATIENT
  Age: 56 Year
  Sex: Male
  Weight: 90.7 kg

DRUGS (3)
  1. IMIQUIMOD. [Suspect]
     Active Substance: IMIQUIMOD
     Indication: ACCIDENTAL EXPOSURE TO PRODUCT
     Dosage: 12.5 MG EVERY MONDAY, WEDNESDAY, FRIDAY
     Route: 061
     Dates: start: 201511, end: 20151201
  2. BABY ASPIRIN [Concomitant]
     Active Substance: ASPIRIN
     Indication: PROPHYLAXIS
     Dosage: 81 MG, QD
     Route: 048
  3. METOPROLOL. [Concomitant]
     Active Substance: METOPROLOL
     Indication: HYPERTENSION
     Dosage: UNK
     Route: 048

REACTIONS (17)
  - Renal pain [Not Recovered/Not Resolved]
  - Drug dispensing error [Recovered/Resolved]
  - Lethargy [Recovering/Resolving]
  - Application site erythema [Recovering/Resolving]
  - Inappropriate schedule of drug administration [Recovered/Resolved]
  - Feeling abnormal [Recovering/Resolving]
  - Nausea [Recovering/Resolving]
  - Headache [Not Recovered/Not Resolved]
  - Hepatic enzyme increased [Unknown]
  - Yellow skin [Not Recovered/Not Resolved]
  - Hepatomegaly [Recovering/Resolving]
  - Localised oedema [Recovered/Resolved]
  - Hepatic pain [Not Recovered/Not Resolved]
  - Ocular icterus [Not Recovered/Not Resolved]
  - Flushing [Not Recovered/Not Resolved]
  - Malaise [Recovering/Resolving]
  - Arthralgia [Recovering/Resolving]

NARRATIVE: CASE EVENT DATE: 201511
